FAERS Safety Report 19963290 (Version 7)
Quarter: 2023Q2

REPORT INFORMATION
  Report Type: Spontaneous
  Country: HR (occurrence: HR)
  Receive Date: 20211018
  Receipt Date: 20230427
  Transmission Date: 20230722
  Serious: Yes (Hospitalization, Other)
  Sender: FDA-Public Use
  Company Number: HR-009507513-2102HRV004332

PATIENT
  Age: 71 Year
  Sex: Male

DRUGS (3)
  1. KEYTRUDA [Suspect]
     Active Substance: PEMBROLIZUMAB
     Indication: Lung adenocarcinoma
     Dosage: UNK
     Dates: start: 201911
  2. KEYTRUDA [Suspect]
     Active Substance: PEMBROLIZUMAB
     Dosage: UNK
     Dates: start: 20201230, end: 202109
  3. KEYTRUDA [Suspect]
     Active Substance: PEMBROLIZUMAB
     Dosage: UNK
     Dates: start: 202111, end: 202210

REACTIONS (17)
  - Basal cell carcinoma [Unknown]
  - B-cell small lymphocytic lymphoma recurrent [Unknown]
  - COVID-19 [Unknown]
  - Immune-mediated gastritis [Unknown]
  - Duodenal ulcer [Unknown]
  - Malignant neoplasm progression [Unknown]
  - Immune-mediated hypothyroidism [Unknown]
  - Immune-mediated lung disease [Recovering/Resolving]
  - Therapy partial responder [Unknown]
  - Dysphagia [Unknown]
  - Eastern Cooperative Oncology Group performance status worsened [Recovered/Resolved]
  - Gliosis [Unknown]
  - Cerebrovascular disorder [Unknown]
  - Weight decreased [Unknown]
  - Cough [Unknown]
  - Pruritus [Unknown]
  - Hepatosplenomegaly [Unknown]

NARRATIVE: CASE EVENT DATE: 20200101
